FAERS Safety Report 8991035 (Version 1)
Quarter: 2012Q4

REPORT INFORMATION
  Report Type: 
  Country: US (occurrence: None)
  Receive Date: 20121227
  Receipt Date: 20121227
  Transmission Date: 20130627
  Serious: Yes (Hospitalization)
  Sender: FDA-Public Use
  Company Number: None

PATIENT
  Sex: Male
  Weight: 82.7 kg

DRUGS (9)
  1. BEVACIZUMAB [Suspect]
  2. IRINOTECAN [Suspect]
  3. ATENOLOL [Concomitant]
  4. FERROUS SULFATE [Concomitant]
  5. FLOMAX [Concomitant]
  6. HCTZ [Concomitant]
  7. K-DUR [Concomitant]
  8. LIPITOR [Concomitant]
  9. VASOTEC [Concomitant]

REACTIONS (2)
  - Neurotoxicity [None]
  - Peripheral motor neuropathy [None]
